FAERS Safety Report 7597702-5 (Version None)
Quarter: 2011Q3

REPORT INFORMATION
  Report Type: 
  Country: None (occurrence: None)
  Receive Date: 20110708
  Receipt Date: 20110425
  Transmission Date: 20111222
  Serious: Yes (Other)
  Sender: FDA-Public Use
  Company Number: US-GLAXOSMITHKLINE-A0924383A

PATIENT
  Age: 61 Year
  Sex: Male

DRUGS (2)
  1. NO CONCURRENT MEDICATION [Concomitant]
  2. CLOBETASOL PROPIONATE [Suspect]
     Indication: ALOPECIA
     Dosage: 1APP TWICE PER DAY
     Route: 061
     Dates: start: 20110404

REACTIONS (5)
  - ATROPHY [None]
  - PRODUCT QUALITY ISSUE [None]
  - DRY SKIN [None]
  - PAIN OF SKIN [None]
  - DRUG INEFFECTIVE [None]
